FAERS Safety Report 13668029 (Version 1)
Quarter: 2017Q2

REPORT INFORMATION
  Report Type: Spontaneous
  Country: US (occurrence: US)
  Receive Date: 20170620
  Receipt Date: 20170620
  Transmission Date: 20170830
  Serious: No
  Sender: FDA-Public Use
  Company Number: US-PFIZER INC-2017265049

PATIENT
  Age: 62 Year
  Sex: Male

DRUGS (1)
  1. SUTENT [Suspect]
     Active Substance: SUNITINIB MALATE
     Indication: GASTRIC ULCER
     Dosage: 50 MG, CYCLIC [1 CAPSULE DAILY FOR 4 WEEKS ON AND 2 WEEKS OFF]
     Route: 048
     Dates: start: 201601

REACTIONS (2)
  - Product use in unapproved indication [Unknown]
  - Fatigue [Unknown]
